FAERS Safety Report 13755560 (Version 1)
Quarter: 2017Q3

REPORT INFORMATION
  Report Type: Spontaneous
  Country: US (occurrence: US)
  Receive Date: 20170714
  Receipt Date: 20170714
  Transmission Date: 20171127
  Serious: Yes (Hospitalization)
  Sender: FDA-Public Use
  Company Number: US-SA-2017SA127529

PATIENT
  Sex: Male
  Weight: 80.42 kg

DRUGS (22)
  1. LANTUS [Concomitant]
     Active Substance: INSULIN GLARGINE
     Route: 058
     Dates: start: 20160428
  2. IBUPROFEN. [Concomitant]
     Active Substance: IBUPROFEN
     Dosage: DOSE: 1 TAB EVERY 8 HOURS
     Route: 048
     Dates: start: 20160428
  3. ZYPREXA [Concomitant]
     Active Substance: OLANZAPINE
     Dosage: DOSE: 1 TAB
     Route: 048
     Dates: start: 20150702
  4. NOVOLOG [Concomitant]
     Active Substance: INSULIN ASPART
     Dosage: DOSE: 1 DOSE
     Route: 058
     Dates: start: 20160428
  5. PAROXETINE. [Concomitant]
     Active Substance: PAROXETINE
     Dosage: DOSE: 01 TAB
     Route: 048
     Dates: start: 20160428
  6. METHADONE [Concomitant]
     Active Substance: METHADONE HYDROCHLORIDE
     Route: 048
     Dates: start: 20150312
  7. LISINOPRIL. [Concomitant]
     Active Substance: LISINOPRIL
     Dosage: DOSE: 1 TAB
     Route: 048
     Dates: start: 20141210
  8. METFORMIN [Concomitant]
     Active Substance: METFORMIN HYDROCHLORIDE
     Dosage: DOSE: 1 TAB
     Route: 048
     Dates: start: 20141210
  9. REMERON [Concomitant]
     Active Substance: MIRTAZAPINE
     Dosage: DOSE: 1 TAB
     Route: 048
     Dates: start: 20160428
  10. ENOXAPARIN SODIUM. [Concomitant]
     Active Substance: ENOXAPARIN SODIUM
     Route: 058
     Dates: start: 20170625
  11. TRIAMCINOLONE [Concomitant]
     Active Substance: TRIAMCINOLONE
     Dosage: DOSE: 1 DOSE
     Route: 061
     Dates: start: 20141210
  12. EPIPEN [Concomitant]
     Active Substance: EPINEPHRINE
     Indication: ANAPHYLACTIC REACTION
     Dates: start: 20161112
  13. TRAZODONE [Concomitant]
     Active Substance: TRAZODONE HYDROCHLORIDE
     Dosage: DOSE: 1 TAB
     Route: 048
     Dates: start: 20150702
  14. METHIONINE [Concomitant]
     Active Substance: METHIONINE
     Dosage: DOSE: 1 DOSE
     Route: 048
     Dates: start: 20141210
  15. NORMAL SALINE [Concomitant]
     Active Substance: SODIUM CHLORIDE
     Indication: MEDICATION DILUTION
     Route: 042
     Dates: start: 20161112
  16. GLIMEPIRIDE. [Concomitant]
     Active Substance: GLIMEPIRIDE
     Dosage: DOSE: 01 TAB
     Route: 048
     Dates: start: 20160428
  17. LOVASTATIN. [Concomitant]
     Active Substance: LOVASTATIN
     Route: 048
     Dates: start: 20141210
  18. BUTALBITAL, ACETAMINOPHEN, AND CAFFEINE [Concomitant]
     Active Substance: ACETAMINOPHEN\BUTALBITAL\CAFFEINE
     Dosage: DOSE: 1 CAPSULE
     Route: 048
     Dates: start: 20141210
  19. CEREZYME [Suspect]
     Active Substance: IMIGLUCERASE
     Route: 041
  20. SEROQUEL [Concomitant]
     Active Substance: QUETIAPINE FUMARATE
     Dosage: DOSE: 1 TABLET
     Route: 048
     Dates: start: 20160428
  21. AMBIEN [Concomitant]
     Active Substance: ZOLPIDEM TARTRATE
     Dosage: DOSE: 1 TABLET
     Route: 048
     Dates: start: 20150702
  22. AMITRIPTYLINE [Concomitant]
     Active Substance: AMITRIPTYLINE
     Dosage: DOSE: 1 TAB EVERY EVENING
     Route: 048
     Dates: start: 20141210

REACTIONS (1)
  - Thrombosis [Recovered/Resolved]

NARRATIVE: CASE EVENT DATE: 20170623
